FAERS Safety Report 13881201 (Version 1)
Quarter: 2017Q3

REPORT INFORMATION
  Report Type: Spontaneous
  Country: US (occurrence: US)
  Receive Date: 20170818
  Receipt Date: 20170818
  Transmission Date: 20171127
  Serious: Yes (Other)
  Sender: FDA-Public Use
  Company Number: US-AMGEN-USASP2017123550

PATIENT
  Age: 61 Year
  Sex: Female

DRUGS (1)
  1. PROLIA [Suspect]
     Active Substance: DENOSUMAB
     Indication: OSTEOPOROSIS POSTMENOPAUSAL
     Dosage: 60 MG, UNK
     Route: 065
     Dates: start: 20161231

REACTIONS (14)
  - Urinary tract infection [Unknown]
  - Pain in extremity [Unknown]
  - Asthma [Unknown]
  - Sleep disorder [Unknown]
  - Cold sweat [Unknown]
  - Chills [Unknown]
  - Dysphonia [Unknown]
  - Kidney infection [Unknown]
  - Paraesthesia [Unknown]
  - Blister infected [Recovering/Resolving]
  - Muscle spasms [Not Recovered/Not Resolved]
  - Cystitis [Unknown]
  - Night sweats [Unknown]
  - Diarrhoea [Unknown]

NARRATIVE: CASE EVENT DATE: 2016
